FAERS Safety Report 5646263-6 (Version None)
Quarter: 2008Q1

REPORT INFORMATION
  Report Type: 
  Country: None (occurrence: None)
  Receive Date: 20080301
  Receipt Date: 20080221
  Transmission Date: 20080703
  Serious: Yes (Other)
  Sender: FDA-Public Use
  Company Number: US-JNJFOC-20080205622

PATIENT
  Sex: Male
  Weight: 106.6 kg

DRUGS (10)
  1. REMICADE [Suspect]
     Indication: RHEUMATOID ARTHRITIS
     Route: 042
  2. ASPIRIN [Concomitant]
  3. METHOTREXATE [Concomitant]
  4. METOPROLOL TARTRATE [Concomitant]
  5. HYDROCHLOROTHIAZINE [Concomitant]
  6. FOLIC ACID [Concomitant]
  7. PRILOSEC [Concomitant]
  8. M.V.I. [Concomitant]
  9. PLATOL [Concomitant]
  10. NABUMETONE [Concomitant]

REACTIONS (1)
  - PROSTATIC SPECIFIC ANTIGEN INCREASED [None]
